FAERS Safety Report 5625318-6 (Version None)
Quarter: 2008Q1

REPORT INFORMATION
  Report Type: 
  Country: None (occurrence: None)
  Receive Date: 20080211
  Receipt Date: 20080204
  Transmission Date: 20080703
  Serious: Yes (Death)
  Sender: FDA-Public Use
  Company Number: 2008-00718

PATIENT
  Age: 44 Year
  Sex: Male

DRUGS (4)
  1. DIAZEPAM [Suspect]
  2. HYDROCODONE BITARTRATE/ACETAMINOPHEN UNKNOWN STRENGTH (WATSON)(HYDROCO [Suspect]
  3. OXYCODONE HCL AND ACETAMINOPHEN [Suspect]
  4. ETHANOL(ETHANOL) [Suspect]

REACTIONS (1)
  - DEATH [None]
